FAERS Safety Report 15964476 (Version 1)
Quarter: 2019Q1

REPORT INFORMATION
  Report Type: Report from Study
  Country: RU (occurrence: RU)
  Receive Date: 20190215
  Receipt Date: 20190215
  Transmission Date: 20190417
  Serious: Yes (Other)
  Sender: FDA-Public Use
  Company Number: RU-ROCHE-1954090

PATIENT
  Age: 59 Year
  Sex: Female
  Weight: 65 kg

DRUGS (9)
  1. COBIMETINIB. [Suspect]
     Active Substance: COBIMETINIB
     Indication: MALIGNANT MELANOMA
     Dosage: DATE OF MOST RECENT DOSE OF COBIMETINIB PRIOR TO AE (RETINAL DETACHMENT, CENTRAL SEROUS RETINOPATHY
     Route: 048
     Dates: start: 20170511
  2. CALCII DOBESILAS [Concomitant]
     Indication: OCULAR TOXICITY
     Route: 065
     Dates: start: 20170608
  3. DEXAMETHASONUM [Concomitant]
     Active Substance: DEXAMETHASONE
     Indication: OCULAR TOXICITY
     Route: 065
     Dates: start: 20170622, end: 20170622
  4. BLINDED ATEZOLIZUMAB [Suspect]
     Active Substance: ATEZOLIZUMAB
     Indication: MALIGNANT MELANOMA
     Dosage: DATE OF MOST RECENT DOSE OF BLINDED ATEZOLIZUMAB PRIOR TO AE (RETINAL DETACHMENT, CENTRAL SEROUS RET
     Route: 042
     Dates: start: 20170608
  5. NIMESULIDUM [Concomitant]
     Indication: BONE PAIN
     Route: 065
     Dates: start: 2017
  6. AMLODIPINE [Concomitant]
     Active Substance: AMLODIPINE BESYLATE
     Indication: HYPERTENSION
     Route: 048
     Dates: start: 2016
  7. METHYLAETHYLPIRIDINOLUM [Concomitant]
     Indication: OCULAR TOXICITY
     Route: 065
     Dates: start: 20170608
  8. DEXAMETHASONUM [Concomitant]
     Active Substance: DEXAMETHASONE
     Route: 065
     Dates: start: 20170721, end: 20170721
  9. VEMURAFENIB. [Suspect]
     Active Substance: VEMURAFENIB
     Indication: MALIGNANT MELANOMA
     Dosage: DATE OF MOST RECENT DOSE OF VEMURAFENIB PRIOR TO AE ONSET (RETINAL DETACHMENT, CENTRAL SEROUS RETINO
     Route: 048
     Dates: start: 20170511

REACTIONS (4)
  - Electrocardiogram QT prolonged [Recovered/Resolved]
  - Chorioretinopathy [Recovered/Resolved]
  - Retinal detachment [Recovered/Resolved]
  - Chorioretinopathy [Recovered/Resolved]

NARRATIVE: CASE EVENT DATE: 20170621
